FAERS Safety Report 10095945 (Version 1)
Quarter: 2014Q2

REPORT INFORMATION
  Report Type: Spontaneous
  Country: GB (occurrence: GB)
  Receive Date: 20140422
  Receipt Date: 20140422
  Transmission Date: 20141212
  Serious: Yes (Death)
  Sender: FDA-Public Use
  Company Number: PHHY2014GB045208

PATIENT
  Age: 54 Year
  Sex: Female

DRUGS (1)
  1. ADOPORT [Suspect]
     Route: 048

REACTIONS (1)
  - Death [Fatal]
